FAERS Safety Report 8957333 (Version 3)
Quarter: 2015Q1

REPORT INFORMATION
  Report Type: Report from Study
  Country: FR (occurrence: FR)
  Receive Date: 20121210
  Receipt Date: 20150316
  Transmission Date: 20150721
  Serious: Yes (Death, Hospitalization)
  Sender: FDA-Public Use
  Company Number: FR-ROCHE-1165383

PATIENT
  Age: 71 Year
  Sex: Female

DRUGS (8)
  1. RITUXIMAB [Suspect]
     Active Substance: RITUXIMAB
     Route: 042
     Dates: start: 20061003
  2. LOVENOX [Concomitant]
     Active Substance: ENOXAPARIN SODIUM
  3. RITUXIMAB [Suspect]
     Active Substance: RITUXIMAB
     Indication: RHEUMATOID ARTHRITIS
     Route: 042
     Dates: start: 20060913
  4. RITUXIMAB [Suspect]
     Active Substance: RITUXIMAB
     Route: 042
     Dates: start: 20070327
  5. CORTANCYL [Concomitant]
     Active Substance: PREDNISONE
     Route: 065
  6. SONDALIS [Concomitant]
     Active Substance: UNSPECIFIED INGREDIENT
  7. CORTANCYL [Concomitant]
     Active Substance: PREDNISONE
     Route: 065
  8. RITUXIMAB [Suspect]
     Active Substance: RITUXIMAB
     Route: 042
     Dates: start: 20070308

REACTIONS (3)
  - Acute respiratory distress syndrome [Fatal]
  - Multi-organ failure [Fatal]
  - Meningitis pneumococcal [Unknown]

NARRATIVE: CASE EVENT DATE: 20080204
